FAERS Safety Report 5410605-7 (Version None)
Quarter: 2007Q3

REPORT INFORMATION
  Report Type: 
  Country: None (occurrence: None)
  Receive Date: 20070810
  Receipt Date: 20070405
  Transmission Date: 20080115
  Serious: No
  Sender: FDA-Public Use
  Company Number: A0646111A

PATIENT
  Age: 63 Year
  Sex: Female

DRUGS (1)
  1. PAROXETINE [Suspect]
     Indication: DEPRESSION
     Dosage: 1TAB UNKNOWN
     Route: 048

REACTIONS (1)
  - DRUG INEFFECTIVE [None]
